FAERS Safety Report 4914920-2 (Version None)
Quarter: 2006Q1

REPORT INFORMATION
  Report Type: 
  Country: None (occurrence: None)
  Receive Date: 20060215
  Receipt Date: 20060215
  Transmission Date: 20060701
  Serious: Yes (Death, Life-Threatening, Hospitalization)
  Sender: FDA-Public Use
  Company Number: None

PATIENT
  Age: 72 Year
  Sex: Male
  Weight: 78.0187 kg

DRUGS (2)
  1. GEMCITABINE (MG/M2) [Suspect]
     Indication: BILIARY CANCER METASTATIC
     Dosage: 1000 D1, D8 IV
     Route: 042
     Dates: start: 20021022, end: 20021029
  2. CISPLATIN (MG/M2) [Suspect]
     Indication: BILIARY CANCER METASTATIC
     Dosage: 30 D1, D8 IV
     Route: 042
     Dates: start: 20021022, end: 20021029

REACTIONS (5)
  - APHAGIA [None]
  - GASTROINTESTINAL HAEMORRHAGE [None]
  - NAUSEA [None]
  - UPPER RESPIRATORY TRACT CONGESTION [None]
  - VOMITING [None]
